FAERS Safety Report 14324229 (Version 1)
Quarter: 2017Q4

REPORT INFORMATION
  Report Type: Spontaneous
  Country: IT (occurrence: IT)
  Receive Date: 20171226
  Receipt Date: 20171226
  Transmission Date: 20180321
  Serious: Yes (Hospitalization, Other)
  Sender: FDA-Public Use
  Company Number: PHHY2017IT151166

PATIENT
  Age: 64 Year
  Sex: Male

DRUGS (2)
  1. COSENTYX [Suspect]
     Active Substance: SECUKINUMAB
     Dosage: 300 MG, QMO
     Route: 058
  2. COSENTYX [Suspect]
     Active Substance: SECUKINUMAB
     Indication: PSORIATIC ARTHROPATHY
     Dosage: 300 MG, UNK
     Route: 058
     Dates: start: 201605

REACTIONS (12)
  - Insomnia [Unknown]
  - Sleep disorder [Unknown]
  - Pain in extremity [Unknown]
  - Peripheral swelling [Unknown]
  - Pruritus [Unknown]
  - Psoriasis [Unknown]
  - Skin exfoliation [Unknown]
  - Burning sensation [Unknown]
  - Movement disorder [Unknown]
  - Skin fissures [Unknown]
  - Therapy non-responder [Unknown]
  - Dry skin [Unknown]

NARRATIVE: CASE EVENT DATE: 20171011
